FAERS Safety Report 16925121 (Version 1)
Quarter: 2019Q4

REPORT INFORMATION
  Report Type: Spontaneous
  Country: US (occurrence: US)
  Receive Date: 20191016
  Receipt Date: 20191016
  Transmission Date: 20200122
  Serious: No
  Sender: FDA-Public Use
  Company Number: US-HORIZON-KRY-0862-2019

PATIENT
  Age: 67 Year
  Sex: Male

DRUGS (5)
  1. KRYSTEXXA [Suspect]
     Active Substance: PEGLOTICASE
     Indication: PRODUCT USED FOR UNKNOWN INDICATION
  2. COLCHICINE. [Concomitant]
     Active Substance: COLCHICINE
     Dosage: DAILY
  3. HYDROCODONE [Concomitant]
     Active Substance: HYDROCODONE
     Dosage: 7.5 EVERY 6 HOURS ALTERNATED WITH TRAMADOL
  4. PREDNISONE. [Concomitant]
     Active Substance: PREDNISONE
     Dosage: 10MG DAILY
  5. TRAMADOL. [Concomitant]
     Active Substance: TRAMADOL
     Indication: BREAKTHROUGH PAIN
     Dosage: EVERY 3 HOURS ALTERNATED WITH HYDROCODONE

REACTIONS (3)
  - Fall [Unknown]
  - Muscle spasms [Unknown]
  - Pain [Unknown]
